FAERS Safety Report 21914482 (Version 33)
Quarter: 2025Q4

REPORT INFORMATION
  Report Type: Report from Study
  Country: SA (occurrence: SA)
  Receive Date: 20230126
  Receipt Date: 20251229
  Transmission Date: 20260117
  Serious: Yes (Hospitalization, Other)
  Sender: ROCHE
  Company Number: SA-ROCHE-3257263

PATIENT
  Age: 6 Year
  Sex: Female
  Weight: 20 kg

DRUGS (15)
  1. EVRYSDI [Suspect]
     Active Substance: RISDIPLAM
     Indication: Spinal muscular atrophy
     Route: 048
     Dates: start: 20230102
  2. EVRYSDI [Suspect]
     Active Substance: RISDIPLAM
     Route: 048
  3. EVRYSDI [Suspect]
     Active Substance: RISDIPLAM
     Route: 048
  4. EVRYSDI [Suspect]
     Active Substance: RISDIPLAM
     Route: 048
  5. EVRYSDI [Suspect]
     Active Substance: RISDIPLAM
     Route: 048
  6. EVRYSDI [Suspect]
     Active Substance: RISDIPLAM
     Route: 048
  7. EVRYSDI [Suspect]
     Active Substance: RISDIPLAM
     Route: 048
  8. EVRYSDI [Suspect]
     Active Substance: RISDIPLAM
     Route: 048
  9. EVRYSDI [Suspect]
     Active Substance: RISDIPLAM
     Route: 048
  10. EVRYSDI [Suspect]
     Active Substance: RISDIPLAM
     Route: 048
  11. EVRYSDI [Suspect]
     Active Substance: RISDIPLAM
     Route: 048
  12. PULMICORT TURBUHALER [Concomitant]
     Active Substance: BUDESONIDE
     Indication: Cough
  13. ALBUTEROL [Concomitant]
     Active Substance: ALBUTEROL
     Indication: Cough
  14. CEFIXIME [Concomitant]
     Active Substance: CEFIXIME
     Indication: Upper respiratory tract infection
     Route: 048
  15. megamox [Concomitant]

REACTIONS (27)
  - Cough [Recovered/Resolved]
  - Intercepted product prescribing error [Unknown]
  - Headache [Recovered/Resolved]
  - Fatigue [Not Recovered/Not Resolved]
  - Abdominal pain [Not Recovered/Not Resolved]
  - Pyrexia [Recovered/Resolved]
  - Upper respiratory tract infection [Not Recovered/Not Resolved]
  - Product dose omission issue [Unknown]
  - Acne [Not Recovered/Not Resolved]
  - Ear pruritus [Not Recovered/Not Resolved]
  - Vomiting [Recovered/Resolved]
  - Chest pain [Not Recovered/Not Resolved]
  - Influenza [Not Recovered/Not Resolved]
  - Oropharyngeal pain [Not Recovered/Not Resolved]
  - Respiratory rate increased [Recovered/Resolved]
  - Decreased appetite [Not Recovered/Not Resolved]
  - Pruritus [Not Recovered/Not Resolved]
  - Abdominal pain upper [Not Recovered/Not Resolved]
  - Dehydration [Not Recovered/Not Resolved]
  - Hypoglycaemia [Recovered/Resolved]
  - Pneumonia [Recovered/Resolved]
  - Incorrect dose administered [Unknown]
  - Nasopharyngitis [Recovered/Resolved]
  - Productive cough [Recovered/Resolved]
  - Night sweats [Not Recovered/Not Resolved]
  - Joint dislocation [Unknown]
  - Back pain [Recovered/Resolved]

NARRATIVE: CASE EVENT DATE: 20230102
